FAERS Safety Report 7488159-3 (Version None)
Quarter: 2011Q2

REPORT INFORMATION
  Report Type: 
  Country: None (occurrence: None)
  Receive Date: 20110518
  Receipt Date: 20110506
  Transmission Date: 20111010
  Serious: Yes (Hospitalization)
  Sender: FDA-Public Use
  Company Number: FR-TEVA-281481ISR

PATIENT
  Age: 48 Year
  Sex: Female

DRUGS (5)
  1. FLURBIPROFEN (ANTADYS) [Suspect]
     Indication: ARTHRALGIA
     Route: 048
     Dates: start: 20101001, end: 20110401
  2. NEBIVOLOL HCL [Concomitant]
     Dosage: FOUR-SCORED TABLET
  3. LERCANIDIPINE [Concomitant]
  4. LEVOTHYROXINE SODIUM [Concomitant]
     Dosage: 100?G SCORED TABLET
  5. SPIRONOLACTONE [Concomitant]

REACTIONS (1)
  - PANCREATITIS [None]
